FAERS Safety Report 14972250 (Version 4)
Quarter: 2021Q3

REPORT INFORMATION
  Report Type: Spontaneous
  Country: US (occurrence: US)
  Receive Date: 20180605
  Receipt Date: 20210813
  Transmission Date: 20211014
  Serious: Yes (Hospitalization, Other)
  Sender: FDA-Public Use
  Company Number: US-MALLINCKRODT-T201802284

PATIENT
  Sex: Female

DRUGS (4)
  1. NALTREXONE [Suspect]
     Active Substance: NALTREXONE
     Indication: DRUG DEPENDENCE
  2. NALTREXONE [Suspect]
     Active Substance: NALTREXONE
     Indication: PAIN
     Dosage: 50 MG, DAILY
     Route: 048
     Dates: start: 20160311
  3. METHADONE [Suspect]
     Active Substance: METHADONE HYDROCHLORIDE
     Indication: DRUG DEPENDENCE
     Dosage: 5 MG, DAILY
     Route: 048
  4. METHADONE [Suspect]
     Active Substance: METHADONE HYDROCHLORIDE
     Indication: PAIN
     Dosage: 40 MG, DAILY
     Route: 048
     Dates: start: 201512

REACTIONS (12)
  - Restless legs syndrome [Not Recovered/Not Resolved]
  - Swelling [Unknown]
  - Dizziness [Unknown]
  - Product prescribing issue [Unknown]
  - Contusion [Unknown]
  - Adverse event [Unknown]
  - Head injury [Unknown]
  - Drug withdrawal syndrome [Unknown]
  - Vomiting [Unknown]
  - Nausea [Unknown]
  - Seizure [Recovered/Resolved]
  - Feeling abnormal [Unknown]
